FAERS Safety Report 7928918-3 (Version None)
Quarter: 2011Q4

REPORT INFORMATION
  Report Type: 
  Country: None (occurrence: None)
  Receive Date: 20111118
  Receipt Date: 20111107
  Transmission Date: 20120403
  Serious: Yes (Death, Hospitalization, Other)
  Sender: FDA-Public Use
  Company Number: US-ROCHE-1011221

PATIENT
  Sex: Female

DRUGS (3)
  1. HERCEPTIN [Suspect]
     Dosage: OVER 30 MINS ON DAY 1 OF EACH WEEK STARTING ON WEEK 2
     Route: 042
     Dates: end: 20030225
  2. GEFITINIB [Suspect]
     Indication: BREAST CANCER
     Route: 048
     Dates: start: 20021203, end: 20030225
  3. HERCEPTIN [Suspect]
     Indication: BREAST CANCER
     Dosage: OVER 90 MIN ON DAY 1 OF WEEK 1 ONLY
     Route: 042
     Dates: start: 20021203

REACTIONS (4)
  - DISEASE PROGRESSION [None]
  - DYSPNOEA [None]
  - PNEUMONITIS [None]
  - LEFT VENTRICULAR DYSFUNCTION [None]
